FAERS Safety Report 9757530 (Version 1)
Quarter: 2013Q4

REPORT INFORMATION
  Report Type: Report from Study
  Country: US (occurrence: US)
  Receive Date: 20131216
  Receipt Date: 20131216
  Transmission Date: 20140711
  Serious: Yes (Other)
  Sender: FDA-Public Use
  Company Number: US-ROCHE-1317922

PATIENT
  Sex: Female

DRUGS (10)
  1. XOLAIR [Suspect]
     Indication: ASTHMA
     Route: 065
     Dates: start: 2011, end: 201304
  2. XOLAIR [Suspect]
     Indication: DYSPNOEA
  3. ALLEGRA [Concomitant]
     Route: 048
  4. IPRATROPIUM BROMIDE [Concomitant]
     Dosage: QID
     Route: 065
  5. NASONEX [Concomitant]
     Dosage: 2 SPRAYS DAILY
     Route: 045
  6. OMEPRAZOLE [Concomitant]
     Dosage: BEFORE MEALS
     Route: 048
  7. PROVENTIL [Concomitant]
     Dosage: 2 PUFFS Q6H AS NEEDED
     Route: 065
  8. SINGULAIR [Concomitant]
     Route: 048
  9. SYMBICORT [Concomitant]
     Dosage: 2 PUFFS BID; IN MORNING AND EVENING
     Route: 065
  10. ADVIL [Concomitant]
     Dosage: AS NEEDED WITH FOOD
     Route: 048

REACTIONS (7)
  - Dyspnoea [Unknown]
  - Pre-eclampsia [Unknown]
  - Cough [Unknown]
  - Chest discomfort [Unknown]
  - Wheezing [Unknown]
  - Maternal exposure during pregnancy [Unknown]
  - Drug dose omission [Unknown]
